FAERS Safety Report 7644002-0 (Version None)
Quarter: 2011Q3

REPORT INFORMATION
  Report Type: 
  Country: None (occurrence: None)
  Receive Date: 20110729
  Receipt Date: 20110510
  Transmission Date: 20111222
  Serious: No
  Sender: FDA-Public Use
  Company Number: US-GLAXOSMITHKLINE-A0926799A

PATIENT
  Age: 14 Day
  Sex: Female

DRUGS (2)
  1. NO CONCURRENT MEDICATION [Concomitant]
  2. ZANTAC [Suspect]
     Indication: ILL-DEFINED DISORDER
     Dosage: 1.25MG TWICE PER DAY
     Route: 048
     Dates: start: 20110425, end: 20110510

REACTIONS (5)
  - DRUG ADMINISTRATION ERROR [None]
  - VOMITING [None]
  - DRUG INEFFECTIVE [None]
  - MEDICATION ERROR [None]
  - ACCIDENTAL OVERDOSE [None]
